FAERS Safety Report 7865393-1 (Version None)
Quarter: 2011Q4

REPORT INFORMATION
  Report Type: 
  Country: None (occurrence: None)
  Receive Date: 20111028
  Receipt Date: 20101213
  Transmission Date: 20120403
  Serious: No
  Sender: FDA-Public Use
  Company Number: US-GLAXOSMITHKLINE-A0899540A

PATIENT
  Age: 54 Year
  Sex: Female

DRUGS (8)
  1. PREMARIN [Concomitant]
  2. ALLERGY RELIEF EYE DROPS (UNSPECIFIED) [Concomitant]
  3. NASONEX [Concomitant]
  4. XANAX [Concomitant]
  5. LOPRESSOR [Concomitant]
  6. ADVAIR DISKUS 100/50 [Suspect]
     Indication: ASTHMA
     Dosage: 1PUFF TWICE PER DAY
     Route: 055
     Dates: start: 20101015
  7. XOPENEX [Concomitant]
     Route: 055
  8. ZYRTEC [Concomitant]

REACTIONS (3)
  - PRODUCT QUALITY ISSUE [None]
  - INHALATION THERAPY [None]
  - DRUG INEFFECTIVE [None]
